FAERS Safety Report 12234410 (Version 3)
Quarter: 2016Q2

REPORT INFORMATION
  Report Type: Spontaneous
  Country: ES (occurrence: ES)
  Receive Date: 20160404
  Receipt Date: 20160404
  Transmission Date: 20160815
  Serious: Yes (Other)
  Sender: FDA-Public Use
  Company Number: ES-AKORN PHARMACEUTICALS-2016AKN00181

PATIENT

DRUGS (1)
  1. ISONIAZID/RIFAMPIN [Suspect]
     Active Substance: ISONIAZID\RIFAMPIN
     Indication: TUBERCULOSIS

REACTIONS (1)
  - Arthritis bacterial [Unknown]
